FAERS Safety Report 9281061 (Version 2)
Quarter: 2013Q2

REPORT INFORMATION
  Report Type: Spontaneous
  Country: US (occurrence: US)
  Receive Date: 20130509
  Receipt Date: 20130530
  Transmission Date: 20140414
  Serious: Yes (Hospitalization)
  Sender: FDA-Public Use
  Company Number: US-BAYER-2013-056512

PATIENT
  Age: 29 Year
  Sex: Female
  Weight: 104.31 kg

DRUGS (9)
  1. YASMIN [Suspect]
     Dosage: UNK
     Dates: start: 200207
  2. OCELLA [Suspect]
     Dosage: UNK
     Dates: start: 200207
  3. ZOLPIDEM [Concomitant]
     Dosage: 5 MG, UNK
  4. METHYLPREDNISOLONE [Concomitant]
     Dosage: 4 MG, UNK
  5. SYNTHROID [Concomitant]
     Dosage: 225 MG, ? TAB
  6. LEVOTHYROXINE [Concomitant]
     Dosage: 100 MCG, 125 MCG
  7. OXYCODONE/APAP [Concomitant]
     Dosage: 5-325 MG
  8. PROZAC [Concomitant]
     Dosage: 20 MG, UNK
     Route: 048
     Dates: start: 20100520
  9. LORTAB [Concomitant]
     Dosage: UNK
     Dates: start: 20100520

REACTIONS (5)
  - Pulmonary embolism [Recovered/Resolved]
  - Pulmonary embolism [None]
  - Injury [Recovered/Resolved]
  - Pain [None]
  - Pain [Recovered/Resolved]
